FAERS Safety Report 7409974-8 (Version None)
Quarter: 2011Q2

REPORT INFORMATION
  Report Type: 
  Country: None (occurrence: None)
  Receive Date: 20110412
  Receipt Date: 20110329
  Transmission Date: 20111010
  Serious: Yes (Hospitalization, Other)
  Sender: FDA-Public Use
  Company Number: BE-ABBOTT-11P-013-0715194-00

PATIENT
  Sex: Female

DRUGS (23)
  1. CLONIDINE HCL [Concomitant]
     Indication: HYPERTENSION
  2. NOBITEN [Concomitant]
     Indication: HYPERTENSION
  3. ARANESP [Concomitant]
     Indication: CARDIOMYOPATHY
  4. D-CURE [Concomitant]
     Indication: OSTEOPOROSIS PROPHYLAXIS
  5. CARDIOASPIRINE [Concomitant]
     Indication: HYPERTENSION
  6. CARDIOASPIRINE [Concomitant]
     Indication: CARDIOMYOPATHY
  7. ARANESP [Concomitant]
     Indication: HYPERTENSION
  8. CLOZAN [Concomitant]
     Indication: INSOMNIA
  9. NITRODERM TTS 15 [Concomitant]
     Indication: PRODUCT USED FOR UNKNOWN INDICATION
     Dosage: 18 HRS, FROM 18H (EVENING) TO 12H (NOON)
  10. BELSAR [Concomitant]
     Indication: CARDIOMYOPATHY
  11. ZANIDIP [Concomitant]
     Indication: CARDIOMYOPATHY
  12. HUMIRA [Suspect]
     Indication: RHEUMATOID ARTHRITIS
     Dates: start: 20060405
  13. CALCIUM [Concomitant]
     Indication: OSTEOPOROSIS PROPHYLAXIS
  14. BELSAR [Concomitant]
     Indication: HYPERTENSION
  15. ZANIDIP [Concomitant]
     Indication: HYPERTENSION
  16. ASAFLOW [Concomitant]
     Indication: PRODUCT USED FOR UNKNOWN INDICATION
  17. ACETYLCYSTEINE [Concomitant]
     Indication: PRODUCT USED FOR UNKNOWN INDICATION
  18. CLONIDINE HCL [Concomitant]
     Indication: CARDIOMYOPATHY
  19. NOVOMIX 30 [Concomitant]
     Indication: DIABETES MELLITUS
     Dosage: 24E IN THE AM + 16E IN THE PM
  20. BURINEX [Concomitant]
     Indication: PRODUCT USED FOR UNKNOWN INDICATION
  21. DUPHALAC [Concomitant]
     Indication: PRODUCT USED FOR UNKNOWN INDICATION
  22. NOBITEN [Concomitant]
     Indication: CARDIOMYOPATHY
  23. LIPITOR [Concomitant]
     Indication: HYPERCHOLESTEROLAEMIA

REACTIONS (12)
  - DIABETIC END STAGE RENAL DISEASE [None]
  - LUNG INFECTION [None]
  - AORTIC STENOSIS [None]
  - ARTHRALGIA [None]
  - MITRAL VALVE INCOMPETENCE [None]
  - ATRIOVENTRICULAR BLOCK [None]
  - JOINT SWELLING [None]
  - HYPERTENSIVE NEPHROPATHY [None]
  - COUGH [None]
  - DIARRHOEA [None]
  - MOBILITY DECREASED [None]
  - SKIN ULCER [None]
